FAERS Safety Report 24875649 (Version 1)
Quarter: 2025Q1

REPORT INFORMATION
  Report Type: Spontaneous
  Country: GB (occurrence: GB)
  Receive Date: 20250122
  Receipt Date: 20250122
  Transmission Date: 20250408
  Serious: Yes (Other)
  Sender: JOHNSON AND JOHNSON
  Company Number: GB-MHRA-TPP26347477C13464599YC1737385197943

PATIENT
  Age: 53 Year
  Sex: Male
  Weight: 104 kg

DRUGS (2)
  1. XARELTO [Suspect]
     Active Substance: RIVAROXABAN
     Indication: Ill-defined disorder
     Dosage: 20 MG, QD
     Route: 048
     Dates: start: 20241230
  2. APIXABAN [Concomitant]
     Active Substance: APIXABAN
     Indication: Ill-defined disorder
     Dosage: 1 DF, BID
     Dates: start: 20250110

REACTIONS (2)
  - Joint swelling [Recovering/Resolving]
  - Pruritus [Unknown]

NARRATIVE: CASE EVENT DATE: 20250120
